FAERS Safety Report 12110149 (Version 1)
Quarter: 2016Q1

REPORT INFORMATION
  Report Type: Spontaneous
  Country: US (occurrence: None)
  Receive Date: 20160223
  Receipt Date: 20160223
  Transmission Date: 20160526
  Serious: Yes (Other)
  Sender: FDA-Public Use
  Company Number: None

PATIENT
  Age: 62 Year
  Sex: Male

DRUGS (1)
  1. SOVALDI [Suspect]
     Active Substance: SOFOSBUVIR
     Indication: HEPATITIS C
     Dosage: 400MG ORAL DAILY
     Route: 048
     Dates: start: 20151201, end: 20160222

REACTIONS (5)
  - Palpitations [None]
  - Drug dose omission [None]
  - Pain in extremity [None]
  - Wrong technique in product usage process [None]
  - Headache [None]

NARRATIVE: CASE EVENT DATE: 20151201
